FAERS Safety Report 20530395 (Version 3)
Quarter: 2023Q1

REPORT INFORMATION
  Report Type: Report from Study
  Country: AU (occurrence: AU)
  Receive Date: 20220301
  Receipt Date: 20230123
  Transmission Date: 20230417
  Serious: Yes (Hospitalization, Other)
  Sender: FDA-Public Use
  Company Number: AU-NOVARTISPH-NVSC2022AU048208

PATIENT
  Sex: Male

DRUGS (1)
  1. COSENTYX [Suspect]
     Active Substance: SECUKINUMAB
     Indication: Ankylosing spondylitis
     Dosage: 300 MG, QMO
     Route: 058
     Dates: start: 20181122

REACTIONS (7)
  - Peripheral swelling [Unknown]
  - Arthropathy [Unknown]
  - Brain injury [Unknown]
  - Ankylosing spondylitis [Unknown]
  - Arthralgia [Recovered/Resolved]
  - Tinnitus [Unknown]
  - Skin mass [Unknown]
